FAERS Safety Report 18691207 (Version 1)
Quarter: 2021Q1

REPORT INFORMATION
  Report Type: Spontaneous
  Country: US (occurrence: US)
  Receive Date: 20210101
  Receipt Date: 20210101
  Transmission Date: 20210419
  Serious: No
  Sender: FDA-Public Use
  Company Number: US-AMGEN-USASP2020213297

PATIENT
  Age: 35 Year
  Sex: Male

DRUGS (2)
  1. OTEZLA [Suspect]
     Active Substance: APREMILAST
     Indication: PSORIASIS
     Dosage: UNK (STARTER PACK, ^TK^ AS DIRECTED)
     Route: 048
     Dates: start: 20201201, end: 202012
  2. OTEZLA [Suspect]
     Active Substance: APREMILAST
     Dosage: UNK (STARTER PACK, ^TK^ AS DIRECTED)
     Route: 048
     Dates: start: 202012

REACTIONS (2)
  - Product dose omission issue [Unknown]
  - Diarrhoea [Recovered/Resolved]

NARRATIVE: CASE EVENT DATE: 202012
